FAERS Safety Report 8396187-9 (Version None)
Quarter: 2012Q2

REPORT INFORMATION
  Report Type: 
  Country: None (occurrence: None)
  Receive Date: 20120530
  Receipt Date: 20120525
  Transmission Date: 20120825
  Serious: Yes (Hospitalization)
  Sender: FDA-Public Use
  Company Number: JP-GLAXOSMITHKLINE-B0797603A

PATIENT
  Sex: Male

DRUGS (3)
  1. KEPPRA [Concomitant]
     Indication: EPILEPSY
     Route: 048
     Dates: start: 20120221
  2. TEGRETOL [Concomitant]
     Indication: EPILEPSY
     Dosage: 200MG PER DAY
     Route: 048
     Dates: start: 20120117
  3. LAMICTAL [Suspect]
     Indication: EPILEPSY
     Dosage: 100MG PER DAY
     Route: 048
     Dates: start: 20120214

REACTIONS (5)
  - PHOTOSENSITIVITY REACTION [None]
  - PYREXIA [None]
  - ERYTHEMA [None]
  - GENERALISED ERYTHEMA [None]
  - DRUG ERUPTION [None]
